FAERS Safety Report 8026304-1 (Version None)
Quarter: 2012Q1

REPORT INFORMATION
  Report Type: 
  Country: None (occurrence: None)
  Receive Date: 20120105
  Receipt Date: 20111215
  Transmission Date: 20120608
  Serious: No
  Sender: FDA-Public Use
  Company Number: US-ABBOTT-11P-163-0883421-00

PATIENT
  Age: 43 Year
  Sex: Female
  Weight: 90.8 kg

DRUGS (1)
  1. SYNTHROID [Suspect]
     Indication: HYPOTHYROIDISM
     Dates: start: 20050101

REACTIONS (9)
  - WEIGHT INCREASED [None]
  - DRY SKIN [None]
  - TENDONITIS [None]
  - MUSCULAR WEAKNESS [None]
  - MUSCLE STRAIN [None]
  - PAIN IN EXTREMITY [None]
  - PRODUCT MEASURED POTENCY ISSUE [None]
  - CARPAL TUNNEL SYNDROME [None]
  - CHAPPED LIPS [None]
